FAERS Safety Report 23027664 (Version 1)
Quarter: 2023Q4

REPORT INFORMATION
  Report Type: Spontaneous
  Country: MY (occurrence: MY)
  Receive Date: 20231004
  Receipt Date: 20231004
  Transmission Date: 20240110
  Serious: Yes (Death, Hospitalization, Other)
  Sender: FDA-Public Use
  Company Number: MY-002147023-NVSC2023MY212860

PATIENT
  Age: 51 Year
  Sex: Male

DRUGS (1)
  1. ENTRESTO [Suspect]
     Active Substance: SACUBITRIL\VALSARTAN
     Indication: Cardiac failure
     Dosage: 50 MG, BID
     Route: 048
     Dates: start: 20230529, end: 20230916

REACTIONS (11)
  - Skin reaction [Fatal]
  - Cardiogenic shock [Fatal]
  - Cardiorenal syndrome [Fatal]
  - Cardiac failure [Unknown]
  - Dyspnoea [Unknown]
  - Exercise tolerance decreased [Unknown]
  - Peripheral swelling [Unknown]
  - Drug reaction with eosinophilia and systemic symptoms [Unknown]
  - Acute kidney injury [Unknown]
  - Dermatitis contact [Unknown]
  - Pruritus [Unknown]

NARRATIVE: CASE EVENT DATE: 20230529
